FAERS Safety Report 11772442 (Version 4)
Quarter: 2015Q4

REPORT INFORMATION
  Report Type: Spontaneous
  Country: US (occurrence: US)
  Receive Date: 20151124
  Receipt Date: 20151229
  Transmission Date: 20160304
  Serious: Yes (Death)
  Sender: FDA-Public Use
  Company Number: US-ALKERMES INC.-ALK-2015-001459

PATIENT

DRUGS (4)
  1. PROZAC [Concomitant]
     Active Substance: FLUOXETINE HYDROCHLORIDE
     Indication: PRODUCT USED FOR UNKNOWN INDICATION
     Dosage: UNK
     Dates: start: 201211
  2. VIVITROL [Suspect]
     Active Substance: NALTREXONE
     Indication: ATTENTION DEFICIT/HYPERACTIVITY DISORDER
     Dosage: 380 MG, QMO
     Route: 030
     Dates: start: 20120710, end: 201210
  3. VIVITROL [Suspect]
     Active Substance: NALTREXONE
     Indication: DRUG DEPENDENCE
     Dosage: 380 MG, QMO
     Route: 030
     Dates: start: 201005, end: 201106
  4. DEXTROAMPHETAMINE SULFATE. [Concomitant]
     Active Substance: DEXTROAMPHETAMINE SULFATE
     Indication: ATTENTION DEFICIT/HYPERACTIVITY DISORDER
     Dosage: 75 MG, QD

REACTIONS (9)
  - Drug abuse [Unknown]
  - Partner stress [Recovered/Resolved]
  - Somnambulism [None]
  - Somnolence [Recovered/Resolved]
  - Off label use [Not Recovered/Not Resolved]
  - Drug dependence [None]
  - Drug dependence [Recovered/Resolved]
  - Accidental overdose [Fatal]
  - Road traffic accident [Recovered/Resolved]

NARRATIVE: CASE EVENT DATE: 20121124
